FAERS Safety Report 7347957-7 (Version None)
Quarter: 2011Q1

REPORT INFORMATION
  Report Type: 
  Country: None (occurrence: None)
  Receive Date: 20110311
  Receipt Date: 20110225
  Transmission Date: 20110831
  Serious: Yes (Hospitalization)
  Sender: FDA-Public Use
  Company Number: US-BAYER-2011-022037

PATIENT
  Sex: Female
  Weight: 46.712 kg

DRUGS (9)
  1. YAZ [Suspect]
     Indication: METRORRHAGIA
     Dosage: UNK
     Dates: start: 20080402, end: 20080619
  2. ZOLPIDEM TARTRATE [Concomitant]
     Dosage: 5 MG, UNK
     Route: 048
  3. CLINDESSE [Concomitant]
     Dosage: 2 %, UNK
     Route: 067
  4. CHANTIX [Concomitant]
     Dosage: 5 MG, UNK
     Route: 048
  5. PREDNISONE [Concomitant]
     Dosage: 50 MG, UNK
     Route: 048
  6. YASMIN [Suspect]
     Indication: METRORRHAGIA
     Dosage: UNK
     Dates: start: 20090520
  7. VENTOLIN HFA [Concomitant]
     Dosage: 90 MCG/24HR, UNK
     Dates: start: 19930101
  8. MULTI-VITAMINS [Concomitant]
     Route: 048
  9. FLUTICASONE PROPIONATE [Concomitant]
     Dosage: 50 MCG/24HR, UNK

REACTIONS (1)
  - CHOLECYSTECTOMY [None]
